FAERS Safety Report 9232681 (Version 1)
Quarter: 2013Q1

REPORT INFORMATION
  Report Type: Spontaneous
  Country: US (occurrence: None)
  Receive Date: 20121031
  Receipt Date: 20121031
  Transmission Date: 20140127
  Serious: No
  Sender: FDA-Public Use
  Company Number: PHEH2012US013219

PATIENT
  Age: 41 Year
  Sex: Male
  Weight: 86.2 kg

DRUGS (1)
  1. GILENYA (FTY) CAPSULE, 0.5MG [Suspect]
     Indication: MULTIPLE SCLEROSIS
     Route: 048

REACTIONS (7)
  - Speech disorder [None]
  - Tremor [None]
  - Abdominal pain upper [None]
  - Decreased appetite [None]
  - Diarrhoea [None]
  - Influenza like illness [None]
  - Headache [None]
